FAERS Safety Report 9639345 (Version 1)
Quarter: 2013Q4

REPORT INFORMATION
  Report Type: Spontaneous
  Country: DE (occurrence: None)
  Receive Date: 20131021
  Receipt Date: 20131021
  Transmission Date: 20140711
  Serious: Yes (Other)
  Sender: FDA-Public Use
  Company Number: 2013291862

PATIENT
  Sex: Female

DRUGS (1)
  1. FRAGMIN P FORTE (DALTEPARIN SODIUM) SOLUTION FOR INJECTION [Suspect]
     Indication: PROPHYLAXIS OF ABORTION

REACTIONS (2)
  - Injection site pain [None]
  - Abortion spontaneous [None]
